FAERS Safety Report 18088000 (Version 1)
Quarter: 2020Q3

REPORT INFORMATION
  Report Type: Spontaneous
  Country: FR (occurrence: FR)
  Receive Date: 20200729
  Receipt Date: 20200729
  Transmission Date: 20201103
  Serious: Yes (Hospitalization, Other)
  Sender: FDA-Public Use
  Company Number: FR-009507513-2007FRA009957

PATIENT
  Sex: Male

DRUGS (2)
  1. ROVALCYTE [Suspect]
     Active Substance: VALGANCICLOVIR HYDROCHLORIDE
  2. PREVYMIS [Suspect]
     Active Substance: LETERMOVIR
     Indication: SUPPORTIVE CARE
     Dosage: UNK

REACTIONS (3)
  - COVID-19 [Unknown]
  - Infection [Unknown]
  - Off label use [Unknown]
